FAERS Safety Report 21260253 (Version 1)
Quarter: 2022Q3

REPORT INFORMATION
  Report Type: Spontaneous
  Country: US (occurrence: US)
  Receive Date: 20220826
  Receipt Date: 20220826
  Transmission Date: 20221027
  Serious: No
  Sender: FDA-Public Use
  Company Number: US-MYLANLABS-2022M1088192

PATIENT
  Sex: Female
  Weight: 61.23 kg

DRUGS (5)
  1. WIXELA INHUB [Suspect]
     Active Substance: FLUTICASONE PROPIONATE\SALMETEROL XINAFOATE
     Indication: Asthma
     Dosage: UNK UNK, BID ( 250/50 MCG)
     Route: 055
  2. WIXELA INHUB [Suspect]
     Active Substance: FLUTICASONE PROPIONATE\SALMETEROL XINAFOATE
     Indication: Hypersensitivity
  3. ALBUTEROL SULFATE [Concomitant]
     Active Substance: ALBUTEROL SULFATE
     Indication: Dyspnoea
     Dosage: 90 MICROGRAM, 2 PUFFS EVERY 4-6 HOURS
     Route: 065
  4. TRIAMCINOLONE ACETONIDE [Concomitant]
     Active Substance: TRIAMCINOLONE ACETONIDE
     Dosage: 55 MICROGRAM, QD (ONE SPRAY NASALLY INTO EACH NOSTRIL EVERYDAY)
     Route: 045
  5. EUCRISA [Concomitant]
     Active Substance: CRISABOROLE
     Indication: Eczema
     Dosage: UNK UNK, BID (TWICE A DAY)
     Route: 065

REACTIONS (1)
  - Epistaxis [Unknown]
